FAERS Safety Report 9281586 (Version 1)
Quarter: 2013Q2

REPORT INFORMATION
  Report Type: Spontaneous
  Country: US (occurrence: US)
  Receive Date: 20130509
  Receipt Date: 20130509
  Transmission Date: 20140414
  Serious: Yes (Hospitalization)
  Sender: FDA-Public Use
  Company Number: US-PERRIGO-13US004801

PATIENT
  Sex: Female

DRUGS (4)
  1. CETIRIZINE 10MG 4H2 [Suspect]
     Indication: RHINORRHOEA
     Dosage: 10MG, QHS
     Route: 048
     Dates: start: 201212, end: 201212
  2. CETIRIZINE 10MG 4H2 [Suspect]
     Indication: UPPER-AIRWAY COUGH SYNDROME
     Dosage: 10 MG, SINGLE
     Route: 048
     Dates: start: 20130424, end: 20130424
  3. LISINOPRIL [Concomitant]
     Indication: HYPERTENSION
     Dosage: 10 MG, QD
     Route: 065
  4. PROPAFENONE [Suspect]
     Indication: ATRIAL FIBRILLATION
     Dosage: 150 MG, TID
     Route: 065
     Dates: start: 201203, end: 20130424

REACTIONS (5)
  - Atrial fibrillation [Recovered/Resolved]
  - Somnolence [Unknown]
  - Drug interaction [Recovered/Resolved]
  - Off label use [Recovered/Resolved]
  - Product quality issue [None]
